FAERS Safety Report 12841146 (Version 1)
Quarter: 2016Q4

REPORT INFORMATION
  Report Type: Spontaneous
  Country: FR (occurrence: FR)
  Receive Date: 20161012
  Receipt Date: 20161012
  Transmission Date: 20170207
  Serious: Yes (Other)
  Sender: FDA-Public Use
  Company Number: FR-MYLANLABS-2016M1043781

PATIENT

DRUGS (4)
  1. TACROLIMUS. [Suspect]
     Active Substance: TACROLIMUS
     Indication: IMMUNOSUPPRESSANT DRUG THERAPY
     Dosage: 5 MG/DAY, LATER DECREASED TO 4MG/DAY, DUE TO ABSENCE OF GRAFT REJECTION
     Route: 065
  2. EVEROLIMUS [Interacting]
     Active Substance: EVEROLIMUS
     Indication: IMMUNOSUPPRESSANT DRUG THERAPY
     Dosage: 1.5 MG/DAY
     Route: 065
  3. DABRAFENIB [Interacting]
     Active Substance: DABRAFENIB
     Indication: MELANOMA RECURRENT
     Dosage: 300 MG/DAY
     Route: 065
  4. TACROLIMUS. [Interacting]
     Active Substance: TACROLIMUS
     Dosage: 4 MG, QD
     Route: 065

REACTIONS (2)
  - Drug interaction [Unknown]
  - Drug level decreased [Unknown]
